FAERS Safety Report 4972949-2 (Version None)
Quarter: 2006Q2

REPORT INFORMATION
  Report Type: 
  Country: None (occurrence: None)
  Receive Date: 20060414
  Receipt Date: 20050302
  Transmission Date: 20061013
  Serious: Yes (Hospitalization)
  Sender: FDA-Public Use
  Company Number: 2005UW03398

PATIENT
  Age: 47 Year
  Sex: Female
  Weight: 74.4 kg

DRUGS (7)
  1. SEROQUEL [Suspect]
     Indication: STRESS
     Route: 048
     Dates: start: 20000101, end: 20041201
  2. SEROQUEL [Suspect]
     Route: 048
  3. SEROQUEL [Suspect]
     Route: 048
  4. MAXAIR [Concomitant]
  5. SINGULAIR [Concomitant]
  6. FLOVENT [Concomitant]
  7. HYDROCHLOROTHIAZIDE [Concomitant]

REACTIONS (20)
  - BACK PAIN [None]
  - CARPAL TUNNEL SYNDROME [None]
  - COUGH [None]
  - CYST [None]
  - DYSKINESIA [None]
  - DYSPNOEA [None]
  - EPISTAXIS [None]
  - FATIGUE [None]
  - HEADACHE [None]
  - HYPOAESTHESIA [None]
  - LUNG NEOPLASM [None]
  - MALAISE [None]
  - NAUSEA [None]
  - NECK PAIN [None]
  - PHARYNGOLARYNGEAL PAIN [None]
  - PSORIASIS [None]
  - SCHIZOPHRENIA [None]
  - TACHYCARDIA [None]
  - TINNITUS [None]
  - TREMOR [None]
